FAERS Safety Report 25541749 (Version 1)
Quarter: 2025Q3

REPORT INFORMATION
  Report Type: Spontaneous
  Country: GB (occurrence: GB)
  Receive Date: 20250711
  Receipt Date: 20250711
  Transmission Date: 20251021
  Serious: Yes (Other)
  Sender: NOVO NORDISK
  Company Number: None

PATIENT
  Age: 57 Year
  Sex: Male
  Weight: 101 kg

DRUGS (9)
  1. OZEMPIC [Suspect]
     Active Substance: SEMAGLUTIDE
     Indication: Ill-defined disorder
     Route: 058
     Dates: start: 20250510, end: 20250624
  2. BECONASE AQ [Concomitant]
     Active Substance: BECLOMETHASONE DIPROPIONATE MONOHYDRATE
     Indication: Ill-defined disorder
     Dates: start: 20230216, end: 20250513
  3. VENTOLIN [Concomitant]
     Active Substance: ALBUTEROL SULFATE
     Indication: Ill-defined disorder
     Dates: start: 20230216, end: 20250513
  4. METFORMIN [Concomitant]
     Active Substance: METFORMIN HYDROCHLORIDE
     Indication: Ill-defined disorder
     Dates: start: 20240313
  5. ATORVASTATIN [Concomitant]
     Active Substance: ATORVASTATIN
     Indication: Ill-defined disorder
     Dates: start: 20240821
  6. SILDENAFIL [Concomitant]
     Active Substance: SILDENAFIL
     Indication: Ill-defined disorder
     Dates: start: 20240821
  7. TESTOSTERONE [Concomitant]
     Active Substance: TESTOSTERONE
     Indication: Ill-defined disorder
     Dates: start: 20240821
  8. RYBELSUS [Concomitant]
     Active Substance: SEMAGLUTIDE
     Indication: Ill-defined disorder
     Dates: start: 20240830, end: 20250510
  9. EMPAGLIFLOZIN [Concomitant]
     Active Substance: EMPAGLIFLOZIN
     Indication: Ill-defined disorder
     Dates: start: 20250317

REACTIONS (2)
  - Swollen tongue [Recovered/Resolved]
  - Pharyngeal swelling [Unknown]
